FAERS Safety Report 10069746 (Version 1)
Quarter: 2014Q2

REPORT INFORMATION
  Report Type: Spontaneous
  Country: US (occurrence: None)
  Receive Date: 20140409
  Receipt Date: 20140409
  Transmission Date: 20141212
  Serious: Yes (Other)
  Sender: FDA-Public Use
  Company Number: None

PATIENT
  Age: 35 Year
  Sex: Female
  Weight: 56.7 kg

DRUGS (2)
  1. TRAZODONE [Suspect]
     Indication: SLEEP DISORDER
     Dosage: 2 TABLETS AT BEDTIME TAKEN BY MOUTH
     Route: 048
  2. AMITIZA [Suspect]
     Indication: CONSTIPATION
     Dosage: 1 CAPSULE AS NEEDED TAKEN BY MOUTH
     Route: 048

REACTIONS (6)
  - Drug interaction [None]
  - Blood pressure decreased [None]
  - Loss of consciousness [None]
  - Cold sweat [None]
  - Hyperhidrosis [None]
  - Paraesthesia [None]
